FAERS Safety Report 23101196 (Version 1)
Quarter: 2023Q4

REPORT INFORMATION
  Report Type: Spontaneous
  Country: US (occurrence: None)
  Receive Date: 20231022
  Receipt Date: 20231022
  Transmission Date: 20240109
  Serious: Yes (Life-Threatening, Hospitalization)
  Sender: FDA-Public Use
  Company Number: None

PATIENT
  Age: 66 Year
  Sex: Male

DRUGS (1)
  1. HYDROCHLOROTHIAZIDE [Suspect]
     Active Substance: HYDROCHLOROTHIAZIDE
     Dosage: FREQUENCY : DAILY;?
     Route: 048
     Dates: start: 20151027, end: 20230112

REACTIONS (4)
  - Angioedema [None]
  - Symptom recurrence [None]
  - Condition aggravated [None]
  - Drug hypersensitivity [None]

NARRATIVE: CASE EVENT DATE: 20230112
